FAERS Safety Report 16576938 (Version 1)
Quarter: 2019Q3

REPORT INFORMATION
  Report Type: Spontaneous
  Country: US (occurrence: US)
  Receive Date: 20190716
  Receipt Date: 20190716
  Transmission Date: 20191004
  Serious: No
  Sender: FDA-Public Use
  Company Number: US-GLENMARK PHARMACEUTICALS-2019GMK039975

PATIENT

DRUGS (2)
  1. MOMETASONE FUROATE CREAM USP, 0.1% [Suspect]
     Active Substance: MOMETASONE FUROATE
     Indication: SKIN IRRITATION
     Dosage: 2 TIMES A WEEK (4 YEARS AGO)
     Route: 061
  2. MOMETASONE FUROATE CREAM USP, 0.1% [Suspect]
     Active Substance: MOMETASONE FUROATE
     Indication: PIGMENTATION DISORDER

REACTIONS (1)
  - Drug effective for unapproved indication [Unknown]
